FAERS Safety Report 5601556-3 (Version None)
Quarter: 2008Q1

REPORT INFORMATION
  Report Type: 
  Country: None (occurrence: None)
  Receive Date: 20080124
  Receipt Date: 20080114
  Transmission Date: 20080703
  Serious: Yes (Disabling, Other)
  Sender: FDA-Public Use
  Company Number: DK-GENENTECH-254310

PATIENT
  Sex: Male
  Weight: 79 kg

DRUGS (1)
  1. XOLAIR [Suspect]
     Indication: ASTHMA
     Dosage: 225 MG, Q14D
     Route: 058
     Dates: start: 20071023, end: 20071023

REACTIONS (2)
  - HEADACHE [None]
  - SOMNOLENCE [None]
